FAERS Safety Report 7708339-9 (Version None)
Quarter: 2011Q3

REPORT INFORMATION
  Report Type: 
  Country: None (occurrence: None)
  Receive Date: 20110825
  Receipt Date: 20061011
  Transmission Date: 20111222
  Serious: No
  Sender: FDA-Public Use
  Company Number: 2006BI014679

PATIENT
  Age: 60 Year
  Sex: Female

DRUGS (2)
  1. TYSABRI [Suspect]
     Indication: MULTIPLE SCLEROSIS
     Route: 042
     Dates: start: 20050101, end: 20050101
  2. TYSABRI [Suspect]
     Route: 042
     Dates: start: 20060913, end: 20061108

REACTIONS (13)
  - EPIGASTRIC DISCOMFORT [None]
  - HYPERHIDROSIS [None]
  - FEELING HOT [None]
  - HYPERSENSITIVITY [None]
  - DYSPHAGIA [None]
  - CHILLS [None]
  - HOT FLUSH [None]
  - PAIN IN EXTREMITY [None]
  - ASTHENIA [None]
  - MUSCLE SPASMS [None]
  - BLOOD PRESSURE DECREASED [None]
  - DIARRHOEA [None]
  - PAIN IN JAW [None]
